FAERS Safety Report 4688727-8 (Version None)
Quarter: 2005Q2

REPORT INFORMATION
  Report Type: 
  Country: None (occurrence: None)
  Receive Date: 20050609
  Receipt Date: 20050609
  Transmission Date: 20051028
  Serious: Yes (Hospitalization)
  Sender: FDA-Public Use
  Company Number: None

PATIENT
  Age: 40 Year
  Sex: Female
  Weight: 95 kg

DRUGS (1)
  1. PREDNISONE [Suspect]
     Indication: BRONCHITIS
     Dosage: 20 MG DAILY PO
     Route: 048
     Dates: start: 20041222, end: 20050106

REACTIONS (1)
  - MYOPATHY TOXIC [None]
